FAERS Safety Report 17162591 (Version 4)
Quarter: 2020Q2

REPORT INFORMATION
  Report Type: Spontaneous
  Country: US (occurrence: US)
  Receive Date: 20191217
  Receipt Date: 20200422
  Transmission Date: 20200713
  Serious: No
  Sender: FDA-Public Use
  Company Number: US-BRISTOL-MYERS SQUIBB COMPANY-BMS-2019-120646

PATIENT
  Sex: Female

DRUGS (2)
  1. SPRYCEL [Suspect]
     Active Substance: DASATINIB
     Indication: LEUKOCYTOSIS
     Dosage: 50 MILLIGRAM, QD
     Route: 048
     Dates: start: 20191015
  2. SPRYCEL [Suspect]
     Active Substance: DASATINIB
     Indication: PRODUCT USED FOR UNKNOWN INDICATION
     Dosage: 80 MILLIGRAM, QD
     Route: 048
     Dates: start: 20191015

REACTIONS (4)
  - Intentional product use issue [Unknown]
  - Night sweats [Unknown]
  - Decreased appetite [Unknown]
  - Weight decreased [Unknown]
